FAERS Safety Report 9888893 (Version 1)
Quarter: 2014Q1

REPORT INFORMATION
  Report Type: Spontaneous
  Country: US (occurrence: US)
  Receive Date: 20140211
  Receipt Date: 20140211
  Transmission Date: 20141002
  Serious: Yes (Hospitalization)
  Sender: FDA-Public Use
  Company Number: US-GLAXOSMITHKLINE-A1059651A

PATIENT
  Age: 85 Year
  Sex: Female

DRUGS (5)
  1. ADVAIR HFA [Suspect]
     Indication: CHRONIC OBSTRUCTIVE PULMONARY DISEASE
     Dosage: 1PUFF TWICE PER DAY
     Route: 055
  2. SPIRIVA [Concomitant]
  3. NEBULIZER [Concomitant]
  4. COMBIVENT [Concomitant]
  5. PROAIR HFA [Concomitant]

REACTIONS (5)
  - Obstruction gastric [Recovered/Resolved]
  - Obstruction gastric [Recovered/Resolved]
  - Intestinal obstruction [Recovered/Resolved]
  - Intestinal operation [Recovered/Resolved]
  - Influenza [Recovered/Resolved]
